FAERS Safety Report 14702960 (Version 1)
Quarter: 2018Q2

REPORT INFORMATION
  Report Type: Spontaneous
  Country: FR (occurrence: FR)
  Receive Date: 20180402
  Receipt Date: 20180402
  Transmission Date: 20180711
  Serious: Yes (Other)
  Sender: FDA-Public Use
  Company Number: FR-MERCK KGAA-2044863

PATIENT
  Age: 45 Year
  Sex: Female

DRUGS (2)
  1. NOVOTHYROX [Suspect]
     Active Substance: LEVOTHYROXINE SODIUM
     Indication: PRODUCT USED FOR UNKNOWN INDICATION
     Dates: start: 2017
  2. NOVOTHYROX [Suspect]
     Active Substance: LEVOTHYROXINE SODIUM

REACTIONS (25)
  - Hyperthyroidism [None]
  - Loss of libido [None]
  - Blood thyroid stimulating hormone increased [None]
  - Personal relationship issue [None]
  - Weight increased [None]
  - Toothache [None]
  - Somnolence [None]
  - Asthenia [None]
  - Social avoidant behaviour [None]
  - Alopecia [None]
  - Nervousness [None]
  - Sensitivity of teeth [None]
  - Visual impairment [None]
  - Urinary tract disorder [None]
  - Gastrointestinal disorder [None]
  - Insomnia [None]
  - Impatience [None]
  - Migraine [None]
  - Menstruation irregular [None]
  - Fatigue [None]
  - Blood thyroid stimulating hormone [None]
  - Headache [None]
  - Nausea [None]
  - Pollakiuria [None]
  - Disturbance in attention [None]

NARRATIVE: CASE EVENT DATE: 20170830
